FAERS Safety Report 6219540-8 (Version None)
Quarter: 2009Q2

REPORT INFORMATION
  Report Type: 
  Country: None (occurrence: None)
  Receive Date: 20090605
  Receipt Date: 20090601
  Transmission Date: 20091009
  Serious: Yes (Death, Congenital Anomaly)
  Sender: FDA-Public Use
  Company Number: 1000006572

PATIENT
  Sex: Female

DRUGS (1)
  1. CITALOPRAM HYDROBROMIDE [Suspect]
     Dosage: 20 MG (20 MG) ,TRANSPLACENT-
     Route: 064
     Dates: start: 20080801, end: 20090417

REACTIONS (4)
  - ANENCEPHALY [None]
  - CAESAREAN SECTION [None]
  - DEATH NEONATAL [None]
  - MATERNAL DRUGS AFFECTING FOETUS [None]
